FAERS Safety Report 20793747 (Version 4)
Quarter: 2023Q1

REPORT INFORMATION
  Report Type: Other
  Country: AU (occurrence: AU)
  Receive Date: 20220506
  Receipt Date: 20230207
  Transmission Date: 20230418
  Serious: No
  Sender: FDA-Public Use
  Company Number: AU-TOLMAR, INC.-22AU033014

PATIENT
  Sex: Male

DRUGS (3)
  1. ELIGARD [Suspect]
     Active Substance: LEUPROLIDE ACETATE
     Indication: Prostate cancer
     Dosage: 22.5 MILLIGRAM, Q 3 MONTH
     Dates: start: 20180604
  2. ELIGARD [Suspect]
     Active Substance: LEUPROLIDE ACETATE
     Dosage: 22.5 MILLIGRAM, Q 3 MONTH
     Dates: start: 202202
  3. BICALUTAMIDE [Concomitant]
     Active Substance: BICALUTAMIDE
     Indication: Product used for unknown indication

REACTIONS (6)
  - Mobility decreased [Not Recovered/Not Resolved]
  - Exercise tolerance decreased [Not Recovered/Not Resolved]
  - Night sweats [Not Recovered/Not Resolved]
  - Prostatic specific antigen increased [Not Recovered/Not Resolved]
  - Arthralgia [Not Recovered/Not Resolved]
  - Hot flush [Not Recovered/Not Resolved]
